FAERS Safety Report 5453896-9 (Version None)
Quarter: 2007Q3

REPORT INFORMATION
  Report Type: 
  Country: None (occurrence: None)
  Receive Date: 20070917
  Receipt Date: 20070907
  Transmission Date: 20080115
  Serious: Yes (Other)
  Sender: FDA-Public Use
  Company Number: B0487285A

PATIENT
  Age: 41 Year
  Sex: Female

DRUGS (5)
  1. LAMICTAL [Suspect]
     Indication: DEPRESSION
     Route: 048
  2. LYRICA [Suspect]
     Indication: DEPRESSION
     Dosage: 300MG PER DAY
     Route: 048
  3. SEROQUEL [Suspect]
     Indication: DEPRESSION
     Route: 065
  4. CIPRALEX [Suspect]
     Indication: DEPRESSION
     Route: 065
  5. STESOLID [Suspect]
     Indication: DEPRESSION
     Route: 065

REACTIONS (2)
  - ABORTION SPONTANEOUS [None]
  - FOETAL HEART RATE ABNORMAL [None]
